FAERS Safety Report 5857867-X (Version None)
Quarter: 2008Q3

REPORT INFORMATION
  Report Type: 
  Country: None (occurrence: None)
  Receive Date: 20080825
  Receipt Date: 20080825
  Transmission Date: 20090109
  Serious: Yes (Hospitalization, Other)
  Sender: FDA-Public Use
  Company Number: None

PATIENT
  Age: 14 Year
  Sex: Female
  Weight: 55.3388 kg

DRUGS (1)
  1. LYRICA [Suspect]
     Indication: PAIN
     Dosage: 75MG 2 X DAILY; 150 MG 2 X DAILY
     Dates: start: 20080309, end: 20080621

REACTIONS (3)
  - DIPLEGIA [None]
  - PHARYNGEAL DISORDER [None]
  - SENSORY DISTURBANCE [None]
